FAERS Safety Report 7579626-2 (Version None)
Quarter: 2011Q2

REPORT INFORMATION
  Report Type: 
  Country: None (occurrence: None)
  Receive Date: 20110629
  Receipt Date: 20110616
  Transmission Date: 20111010
  Serious: Yes (Other)
  Sender: FDA-Public Use
  Company Number: US-BAYER-2011-019094

PATIENT
  Age: 29 Year
  Sex: Female
  Weight: 80.726 kg

DRUGS (1)
  1. MIRENA [Suspect]
     Indication: CONTRACEPTION
     Dosage: 20 ?G, CONT
     Dates: start: 20101012, end: 20110225

REACTIONS (7)
  - ABDOMINAL DISTENSION [None]
  - DEVICE DISLOCATION [None]
  - PAIN [None]
  - ABDOMINAL PAIN [None]
  - PUBIC PAIN [None]
  - PELVIC PAIN [None]
  - GENITAL HAEMORRHAGE [None]
